FAERS Safety Report 4704060-X (Version None)
Quarter: 2005Q2

REPORT INFORMATION
  Report Type: 
  Country: None (occurrence: None)
  Receive Date: 20050629
  Receipt Date: 20020404
  Transmission Date: 20051028
  Serious: Yes (Life-Threatening, Hospitalization)
  Sender: FDA-Public Use
  Company Number: 3537

PATIENT
  Age: 69 Year
  Sex: Male

DRUGS (2)
  1. DACARBAZINE [Suspect]
     Indication: INTRAOCULAR MELANOMA
     Dosage: 220 MG/M2 IV
     Route: 042
  2. INTERFERON ALFA [Concomitant]

REACTIONS (7)
  - ASTERIXIS [None]
  - HEPATIC ENCEPHALOPATHY [None]
  - HEPATIC FAILURE [None]
  - HEPATITIS FULMINANT [None]
  - HEPATOTOXICITY [None]
  - HYPOGLYCAEMIA [None]
  - HYPOTENSION [None]
